FAERS Safety Report 5344151-6 (Version None)
Quarter: 2007Q2

REPORT INFORMATION
  Report Type: 
  Country: None (occurrence: None)
  Receive Date: 20070604
  Receipt Date: 20070531
  Transmission Date: 20071010
  Serious: Yes (Death, Life-Threatening, Hospitalization)
  Sender: FDA-Public Use
  Company Number: KR-SANOFI-SYNTHELABO-F01200700432

PATIENT
  Sex: Male
  Weight: 78 kg

DRUGS (2)
  1. DOXORUBICIN HCL [Suspect]
     Dates: start: 20060718, end: 20060718
  2. ELOXATIN [Suspect]
     Indication: HEPATIC NEOPLASM MALIGNANT
     Dates: start: 20060718, end: 20060718

REACTIONS (1)
  - ASCITES [None]
